FAERS Safety Report 5563178-2 (Version None)
Quarter: 2007Q4

REPORT INFORMATION
  Report Type: 
  Country: None (occurrence: None)
  Receive Date: 20071212
  Receipt Date: 20071212
  Transmission Date: 20080405
  Serious: Yes (Life-Threatening, Hospitalization)
  Sender: FDA-Public Use
  Company Number: None

PATIENT
  Age: 46 Year
  Sex: Male
  Weight: 59.4212 kg

DRUGS (7)
  1. COUMADIN [Suspect]
     Indication: DEEP VEIN THROMBOSIS
     Dosage: 4.5 MG  DAILY  PO
     Route: 048
  2. COUMADIN [Suspect]
     Indication: FACTOR V LEIDEN MUTATION
     Dosage: 4.5 MG  DAILY  PO
     Route: 048
  3. AMIODARONE HCL [Suspect]
     Indication: VENTRICULAR EXTRASYSTOLES
     Dosage: 400 MG   DAILY  PO
     Route: 048
     Dates: start: 20070804, end: 20070919
  4. AMIODARONE HCL [Suspect]
     Indication: VENTRICULAR TACHYCARDIA
     Dosage: 400 MG   DAILY  PO
     Route: 048
     Dates: start: 20070804, end: 20070919
  5. TOPROL-XL [Concomitant]
  6. DILANTIN [Concomitant]
  7. FOLATE [Concomitant]

REACTIONS (15)
  - ANAEMIA [None]
  - CARDIAC TAMPONADE [None]
  - CARDIOGENIC SHOCK [None]
  - DIARRHOEA [None]
  - DIZZINESS [None]
  - EJECTION FRACTION DECREASED [None]
  - FEELING ABNORMAL [None]
  - HEPATOTOXICITY [None]
  - INTERNATIONAL NORMALISED RATIO INCREASED [None]
  - ISCHAEMIC HEPATITIS [None]
  - PERICARDIAL HAEMORRHAGE [None]
  - PLEURAL EFFUSION [None]
  - PULMONARY TOXICITY [None]
  - RENAL FAILURE ACUTE [None]
  - VOMITING [None]
